FAERS Safety Report 21515478 (Version 1)
Quarter: 2022Q4

REPORT INFORMATION
  Report Type: Spontaneous
  Country: US (occurrence: None)
  Receive Date: 20221027
  Receipt Date: 20221027
  Transmission Date: 20230112
  Serious: Yes (Life-Threatening, Hospitalization, Disabling, Other)
  Sender: FDA-Public Use
  Company Number: None

PATIENT
  Age: 46 Year
  Sex: Male
  Weight: 115.2 kg

DRUGS (1)
  1. HYDROCHLOROTHIAZIDE [Suspect]
     Active Substance: HYDROCHLOROTHIAZIDE
     Dosage: OTHER QUANTITY : 1 TABLET(S);?FREQUENCY : DAILY;?

REACTIONS (9)
  - Malaise [None]
  - Disorientation [None]
  - Circulatory collapse [None]
  - Fall [None]
  - Myocardial infarction [None]
  - Ventricular tachycardia [None]
  - Cardiac arrest [None]
  - Arrhythmia [None]
  - Blood potassium decreased [None]

NARRATIVE: CASE EVENT DATE: 20210323
